FAERS Safety Report 12898183 (Version 1)
Quarter: 2016Q4

REPORT INFORMATION
  Report Type: Spontaneous
  Country: FR (occurrence: FR)
  Receive Date: 20161031
  Receipt Date: 20161031
  Transmission Date: 20170207
  Serious: Yes (Hospitalization)
  Sender: FDA-Public Use
  Company Number: FR-JNJFOC-20161024099

PATIENT
  Age: 30 Year
  Sex: Male

DRUGS (8)
  1. TRUVADA [Concomitant]
     Active Substance: EMTRICITABINE\TENOFOVIR DISOPROXIL FUMARATE
     Route: 065
  2. RISPERDAL [Suspect]
     Active Substance: RISPERIDONE
     Indication: ABNORMAL BEHAVIOUR
     Dosage: IN THE MORNING; FROM END OF 2015
     Route: 065
     Dates: start: 2015, end: 201602
  3. LIPANTHYL [Concomitant]
     Active Substance: FENOFIBRATE
     Route: 065
  4. RISPERDAL [Suspect]
     Active Substance: RISPERIDONE
     Indication: ABNORMAL BEHAVIOUR
     Dosage: IN THE MORNING AND EVENING
     Route: 065
     Dates: start: 201602, end: 20160324
  5. LIORESAL [Concomitant]
     Active Substance: BACLOFEN
     Route: 065
  6. LORAZEPAM. [Concomitant]
     Active Substance: LORAZEPAM
     Route: 065
  7. CERIS [Concomitant]
     Active Substance: TROSPIUM CHLORIDE
     Route: 065
  8. VIRAMUNE [Concomitant]
     Active Substance: NEVIRAPINE
     Route: 065

REACTIONS (4)
  - Extrapyramidal disorder [Recovering/Resolving]
  - Gene mutation identification test positive [Recovering/Resolving]
  - Pyramidal tract syndrome [Recovering/Resolving]
  - Product use issue [Unknown]

NARRATIVE: CASE EVENT DATE: 2015
